FAERS Safety Report 12649250 (Version 2)
Quarter: 2016Q4

REPORT INFORMATION
  Report Type: Report from Study
  Country: US (occurrence: US)
  Receive Date: 20160812
  Receipt Date: 20161102
  Transmission Date: 20170207
  Serious: Yes (Hospitalization)
  Sender: FDA-Public Use
  Company Number: US-ACTELION-A-US2016-140343

PATIENT
  Age: 84 Year
  Sex: Male

DRUGS (3)
  1. OPSUMIT [Suspect]
     Active Substance: MACITENTAN
     Indication: PULMONARY ARTERIAL HYPERTENSION
     Dosage: 10 MG, UNK
     Route: 048
     Dates: start: 20141104
  2. SILDENAFIL. [Concomitant]
     Active Substance: SILDENAFIL
  3. ESBRIET [Concomitant]
     Active Substance: PIRFENIDONE

REACTIONS (7)
  - Vomiting [Unknown]
  - Injury [Unknown]
  - Fall [Unknown]
  - Oxygen consumption increased [Unknown]
  - Loss of consciousness [Unknown]
  - Dyspnoea [Unknown]
  - Hypotension [Unknown]
